FAERS Safety Report 7378696-4 (Version None)
Quarter: 2011Q1

REPORT INFORMATION
  Report Type: 
  Country: None (occurrence: None)
  Receive Date: 20110328
  Receipt Date: 20110318
  Transmission Date: 20110831
  Serious: Yes (Hospitalization, Other)
  Sender: FDA-Public Use
  Company Number: BR-ELI_LILLY_AND_COMPANY-BR201103006535

PATIENT
  Age: 85 Year
  Sex: Male

DRUGS (2)
  1. HUMALOG [Suspect]
     Indication: TYPE 2 DIABETES MELLITUS
     Dosage: UNK, UNKNOWN
     Route: 065
  2. HUMALOG [Suspect]
     Dosage: 8 IU, BID

REACTIONS (5)
  - CHOLELITHIASIS [None]
  - ASTHENOPIA [None]
  - APPENDICITIS [None]
  - PROSTATE CANCER [None]
  - CATARACT [None]
